FAERS Safety Report 4420896-7 (Version None)
Quarter: 2004Q3

REPORT INFORMATION
  Report Type: 
  Country: None (occurrence: None)
  Receive Date: 20040809
  Receipt Date: 20040729
  Transmission Date: 20050211
  Serious: Yes (Hospitalization)
  Sender: FDA-Public Use
  Company Number: FR-ROCHE-376122

PATIENT
  Age: 84 Year
  Sex: Female

DRUGS (8)
  1. VALIUM [Suspect]
     Indication: ANXIETY
     Route: 048
     Dates: end: 20040205
  2. VALIUM [Suspect]
     Route: 048
  3. RIVOTRIL [Interacting]
     Indication: DRUG USE FOR UNKNOWN INDICATION
     Route: 048
     Dates: end: 20040205
  4. SERESTA [Interacting]
     Indication: SLEEP DISORDER
     Route: 048
     Dates: end: 20040205
  5. DURAGESIC [Interacting]
     Indication: PAIN
     Route: 048
     Dates: start: 20040205, end: 20040205
  6. OXEOL [Concomitant]
     Route: 048
  7. CALCIDIA [Concomitant]
     Route: 048
  8. SINGULAIR [Concomitant]
     Route: 048

REACTIONS (11)
  - CARDIOMEGALY [None]
  - DRUG INTERACTION [None]
  - FALL [None]
  - HYPOVENTILATION [None]
  - HYPOXIA [None]
  - OSTEOPOROSIS [None]
  - RENAL FAILURE CHRONIC [None]
  - RESPIRATORY ACIDOSIS [None]
  - RESPIRATORY DISTRESS [None]
  - RESPIRATORY FAILURE [None]
  - RIB FRACTURE [None]
